FAERS Safety Report 5413927-9 (Version None)
Quarter: 2007Q3

REPORT INFORMATION
  Report Type: 
  Country: None (occurrence: None)
  Receive Date: 20070814
  Receipt Date: 20070814
  Transmission Date: 20080115
  Serious: Yes (Death)
  Sender: FDA-Public Use
  Company Number: IL-ROXANE LABORATORIES, INC-2007-DE-04697GD

PATIENT
  Sex: Female

DRUGS (12)
  1. PREDNISONE TAB [Suspect]
     Indication: AMYLOIDOSIS
  2. PREDNISONE TAB [Suspect]
     Indication: MULTIPLE MYELOMA
  3. PREDNISONE TAB [Suspect]
     Indication: PULMONARY HYPERTENSION
  4. DEXAMETHASONE 0.5MG TAB [Suspect]
     Indication: AMYLOIDOSIS
  5. DEXAMETHASONE 0.5MG TAB [Suspect]
     Indication: MULTIPLE MYELOMA
  6. DEXAMETHASONE 0.5MG TAB [Suspect]
     Indication: PULMONARY HYPERTENSION
  7. CYCLOPHOSPHAMIDE [Suspect]
     Indication: AMYLOIDOSIS
  8. CYCLOPHOSPHAMIDE [Suspect]
     Indication: MULTIPLE MYELOMA
  9. CYCLOPHOSPHAMIDE [Suspect]
     Indication: PULMONARY HYPERTENSION
  10. CHLORAMBUCIL [Suspect]
     Indication: AMYLOIDOSIS
  11. CHLORAMBUCIL [Suspect]
     Indication: MULTIPLE MYELOMA
  12. CHLORAMBUCIL [Suspect]
     Indication: PULMONARY HYPERTENSION

REACTIONS (4)
  - CONDITION AGGRAVATED [None]
  - PANCYTOPENIA [None]
  - PNEUMONIA [None]
  - RESPIRATORY FAILURE [None]
